FAERS Safety Report 18120009 (Version 1)
Quarter: 2020Q3

REPORT INFORMATION
  Report Type: Spontaneous
  Country: ES (occurrence: ES)
  Receive Date: 20200806
  Receipt Date: 20200806
  Transmission Date: 20201103
  Serious: Yes (Other)
  Sender: FDA-Public Use
  Company Number: ES-ASTRAZENECA-2020SE95662

PATIENT
  Age: 3 Month
  Sex: Male
  Weight: 7 kg

DRUGS (1)
  1. OP2455 ? OMEPRAZOLE [Suspect]
     Active Substance: OMEPRAZOLE
     Indication: GASTROOESOPHAGEAL REFLUX DISEASE
     Dosage: HE STARTS WITH A DOSE OF 2 MG/ML FOR 10 DAYS, INCREASES TO 5 MG/ML FOR 2 WEEKS AND FROM HERE DECR...
     Route: 048
     Dates: start: 20200609, end: 20200715

REACTIONS (1)
  - Hypertrichosis [Not Recovered/Not Resolved]

NARRATIVE: CASE EVENT DATE: 20200708
